FAERS Safety Report 5517583-0 (Version None)
Quarter: 2007Q4

REPORT INFORMATION
  Report Type: 
  Country: None (occurrence: None)
  Receive Date: 20071114
  Receipt Date: 20071018
  Transmission Date: 20080405
  Serious: Yes (Other)
  Sender: FDA-Public Use
  Company Number: DE-PFIZER INC-2007089766

PATIENT
  Sex: Male
  Weight: 75 kg

DRUGS (2)
  1. CABASERIL [Suspect]
     Indication: PARKINSONISM
     Dosage: DAILY DOSE:1MG
     Route: 048
     Dates: start: 20020101, end: 20070601
  2. NACOM ^MSD^ [Concomitant]
     Route: 048

REACTIONS (4)
  - AORTIC VALVE INCOMPETENCE [None]
  - AORTIC VALVE SCLEROSIS [None]
  - DYSPNOEA [None]
  - TRICUSPID VALVE INCOMPETENCE [None]
